FAERS Safety Report 6719900-2 (Version None)
Quarter: 2010Q2

REPORT INFORMATION
  Report Type: 
  Country: None (occurrence: None)
  Receive Date: 20100507
  Receipt Date: 20100428
  Transmission Date: 20101027
  Serious: Yes (Hospitalization)
  Sender: FDA-Public Use
  Company Number: 8053907

PATIENT
  Sex: Female
  Weight: 61.9 kg

DRUGS (2)
  1. KEPPRA XR [Suspect]
     Indication: CONVULSION
     Dosage: 2000 MG QD ORAL
     Route: 048
     Dates: start: 20090625
  2. LAMOTRIGINE [Concomitant]

REACTIONS (3)
  - CONVULSION [None]
  - OEDEMA [None]
  - TOXIC SKIN ERUPTION [None]
